FAERS Safety Report 6380572-0 (Version None)
Quarter: 2009Q3

REPORT INFORMATION
  Report Type: 
  Country: None (occurrence: None)
  Receive Date: 20090929
  Receipt Date: 20090923
  Transmission Date: 20100115
  Serious: No
  Sender: FDA-Public Use
  Company Number: BR-BAYER-200817322LA

PATIENT
  Age: 19 Year
  Sex: Female

DRUGS (4)
  1. YASMIN [Suspect]
     Indication: DRUG USE FOR UNKNOWN INDICATION
     Route: 048
     Dates: start: 20060101, end: 20090101
  2. YASMIN [Suspect]
     Route: 048
     Dates: start: 20090101, end: 20090101
  3. YAZ [Suspect]
     Indication: PREMENSTRUAL SYNDROME
     Route: 048
     Dates: start: 20080101, end: 20090101
  4. YAZ [Suspect]
     Route: 048
     Dates: start: 20090101

REACTIONS (5)
  - DIPLOPIA [None]
  - KERATITIS [None]
  - PREMENSTRUAL SYNDROME [None]
  - REFRACTION DISORDER [None]
  - VISION BLURRED [None]
